FAERS Safety Report 23686134 (Version 1)
Quarter: 2024Q1

REPORT INFORMATION
  Report Type: Spontaneous
  Country: US (occurrence: US)
  Receive Date: 20240329
  Receipt Date: 20240329
  Transmission Date: 20240409
  Serious: Yes (Other)
  Sender: FDA-Public Use
  Company Number: US-SUN PHARMACEUTICAL INDUSTRIES LTD-2024R1-438801

PATIENT
  Age: 67 Year
  Sex: Male

DRUGS (9)
  1. TACROLIMUS [Suspect]
     Active Substance: TACROLIMUS
     Indication: Pruritus
     Route: 061
  2. NALTREXONE [Suspect]
     Active Substance: NALTREXONE
     Indication: Pruritus
     Route: 065
  3. GABAPENTIN [Suspect]
     Active Substance: GABAPENTIN
     Indication: Pruritus
     Route: 065
  4. METHOTREXATE [Suspect]
     Active Substance: METHOTREXATE
     Indication: Pruritus
     Route: 048
  5. ROFLUMILAST [Suspect]
     Active Substance: ROFLUMILAST
     Indication: Pruritus
     Route: 061
  6. TAPINAROF [Suspect]
     Active Substance: TAPINAROF
     Indication: Pruritus
     Route: 065
  7. CAPSAICIN [Suspect]
     Active Substance: CAPSAICIN
     Indication: Pruritus
     Route: 065
  8. DUPILUMAB [Suspect]
     Active Substance: DUPILUMAB
     Indication: Pruritus
     Route: 065
  9. RUXOLITINIB [Suspect]
     Active Substance: RUXOLITINIB
     Indication: Pruritus
     Route: 061

REACTIONS (2)
  - Drug ineffective [Unknown]
  - Disease progression [Unknown]
